FAERS Safety Report 9049820 (Version 1)
Quarter: 2013Q1

REPORT INFORMATION
  Report Type: Spontaneous
  Country: FR (occurrence: FR)
  Receive Date: 20130205
  Receipt Date: 20130205
  Transmission Date: 20140127
  Serious: Yes (Death, Life-Threatening, Hospitalization)
  Sender: FDA-Public Use
  Company Number: FR-ASTRAZENECA-2013SE06747

PATIENT
  Age: 18920 Day
  Sex: Female

DRUGS (10)
  1. XEROQUEL [Suspect]
     Indication: CHILDHOOD PSYCHOSIS
     Route: 048
     Dates: start: 20121221, end: 20121221
  2. XEROQUEL [Suspect]
     Indication: CHILDHOOD PSYCHOSIS
     Route: 048
     Dates: start: 20121222, end: 20121222
  3. XEROQUEL [Suspect]
     Indication: CHILDHOOD PSYCHOSIS
     Route: 048
     Dates: start: 20121223, end: 20130101
  4. TERCIAN [Concomitant]
     Indication: CHILDHOOD PSYCHOSIS
  5. VALIUM [Concomitant]
     Indication: CHILDHOOD PSYCHOSIS
  6. LEPTICUR [Concomitant]
     Indication: CHILDHOOD PSYCHOSIS
  7. THERALENE [Concomitant]
     Indication: CHILDHOOD PSYCHOSIS
  8. SULFARLEM [Concomitant]
     Indication: CHILDHOOD PSYCHOSIS
  9. LIPANTHYL [Concomitant]
     Indication: HYPERCHOLESTEROLAEMIA
  10. DEROXAT [Concomitant]

REACTIONS (7)
  - Coma [Fatal]
  - Convulsion [Fatal]
  - Cardiac arrest [Fatal]
  - Inappropriate antidiuretic hormone secretion [Recovered/Resolved with Sequelae]
  - Pneumonia aspiration [Fatal]
  - Head injury [Unknown]
  - Laceration [Unknown]
